FAERS Safety Report 13164796 (Version 1)
Quarter: 2017Q1

REPORT INFORMATION
  Report Type: Spontaneous
  Country: SE (occurrence: SE)
  Receive Date: 20170130
  Receipt Date: 20170130
  Transmission Date: 20170428
  Serious: Yes (Disabling)
  Sender: FDA-Public Use
  Company Number: SE-SA-2017SA011693

PATIENT
  Age: 29 Year
  Sex: Male

DRUGS (1)
  1. THYMOGLOBULINE [Suspect]
     Active Substance: LAPINE T-LYMPHOCYTE IMMUNE GLOBULIN
     Dosage: ^TOTALT 6 MG/KG^
     Route: 065
     Dates: start: 20150305, end: 20150309

REACTIONS (1)
  - Hypothyroidism [Recovered/Resolved]
